FAERS Safety Report 7869167 (Version 4)
Quarter: 2013Q3

REPORT INFORMATION
  Report Type: Spontaneous
  Country: BR (occurrence: BR)
  Receive Date: 20110324
  Receipt Date: 20130723
  Transmission Date: 20140515
  Serious: Yes (Hospitalization)
  Sender: FDA-Public Use
  Company Number: BR-US-EMD SERONO, INC.-7048356

PATIENT
  Age: 36 Year
  Sex: Male

DRUGS (1)
  1. REBIF [Suspect]
     Indication: RELAPSING-REMITTING MULTIPLE SCLEROSIS
     Dates: start: 20090110

REACTIONS (6)
  - Motor dysfunction [Recovering/Resolving]
  - Muscular weakness [Recovering/Resolving]
  - Cerebral ventricle dilatation [Recovering/Resolving]
  - Gait disturbance [Recovering/Resolving]
  - Hypoaesthesia [Recovering/Resolving]
  - Headache [Not Recovered/Not Resolved]
